FAERS Safety Report 22726106 (Version 2)
Quarter: 2025Q4

REPORT INFORMATION
  Report Type: Report from Study
  Country: GB (occurrence: GB)
  Receive Date: 20230720
  Receipt Date: 20251022
  Transmission Date: 20260117
  Serious: Yes (Hospitalization, Other)
  Sender: CELLTRION
  Company Number: GB-CELLTRION INC.-2023GB014308

PATIENT

DRUGS (7)
  1. HYRIMOZ [Suspect]
     Active Substance: ADALIMUMAB-ADAZ
     Indication: Product used for unknown indication
     Dosage: UNK
     Route: 065
     Dates: start: 20190522
  2. ADALIMUMAB [Suspect]
     Active Substance: ADALIMUMAB
     Indication: Product used for unknown indication
     Dosage: UNK
     Route: 065
     Dates: start: 20190522
  3. AZATHIOPRINE [Suspect]
     Active Substance: AZATHIOPRINE
     Indication: Crohn^s disease
     Dosage: UNK
     Route: 065
     Dates: start: 20160901
  4. BUDESONIDE [Suspect]
     Active Substance: BUDESONIDE
     Indication: Crohn^s disease
     Dosage: UNK
     Route: 065
     Dates: start: 20171111, end: 20180111
  5. REMICADE [Suspect]
     Active Substance: INFLIXIMAB
     Indication: Crohn^s disease
     Dosage: UNK
     Route: 042
     Dates: start: 20180111
  6. REMICADE [Suspect]
     Active Substance: INFLIXIMAB
     Dosage: UNK
     Route: 042
     Dates: start: 20160921, end: 20171211
  7. REMICADE [Suspect]
     Active Substance: INFLIXIMAB
     Dosage: UNK
     Route: 042
     Dates: start: 20180911

REACTIONS (5)
  - Crohn^s disease [Recovered/Resolved]
  - Limb injury [Recovering/Resolving]
  - Tonsillitis [Recovered/Resolved]
  - Drug specific antibody present [Recovered/Resolved]
  - Drug ineffective [Recovered/Resolved]

NARRATIVE: CASE EVENT DATE: 20160921
